FAERS Safety Report 7393479-7 (Version None)
Quarter: 2011Q2

REPORT INFORMATION
  Report Type: 
  Country: None (occurrence: None)
  Receive Date: 20110405
  Receipt Date: 20110218
  Transmission Date: 20111010
  Serious: Yes (Hospitalization)
  Sender: FDA-Public Use
  Company Number: US-BAYER-201034867NA

PATIENT
  Sex: Female
  Weight: 52.154 kg

DRUGS (11)
  1. PHENERGAN HCL [Concomitant]
     Indication: VOMITING
     Dosage: 12.5 MG, PRN
     Route: 048
     Dates: start: 20071023
  2. SEROQUEL [Concomitant]
     Indication: DEPRESSION
     Dosage: 25 MG, UNK
     Route: 048
     Dates: start: 20070501
  3. IBUPROFEN [Concomitant]
     Dosage: 800 MG, UNK
     Dates: start: 20071217
  4. FIORICET [Concomitant]
     Indication: PRODUCT USED FOR UNKNOWN INDICATION
     Dosage: UNK
     Dates: start: 20071101
  5. OCELLA [Suspect]
     Indication: PRODUCT USED FOR UNKNOWN INDICATION
  6. PAXIL [Concomitant]
     Indication: ANXIETY
     Dosage: 20 MG, QD
     Route: 048
     Dates: start: 20071023
  7. MOTRIN [Concomitant]
     Indication: PRODUCT USED FOR UNKNOWN INDICATION
     Dosage: 800 MG, UNK
  8. YASMIN [Suspect]
     Indication: CONTRACEPTION
     Dosage: UNK
     Dates: start: 20070401, end: 20071101
  9. POTASSIUM [POTASSIUM] [Concomitant]
     Indication: PRODUCT USED FOR UNKNOWN INDICATION
     Dosage: UNK
     Dates: start: 20071101
  10. YAZ [Suspect]
     Indication: CONTRACEPTION
     Dosage: UNK
     Dates: start: 20070401, end: 20071101
  11. INFLUENZA VACCINE [Concomitant]
     Dosage: UNK
     Dates: start: 20071101

REACTIONS (7)
  - CEREBROVASCULAR ACCIDENT [None]
  - DIZZINESS [None]
  - HYPOAESTHESIA [None]
  - TINNITUS [None]
  - THALAMIC INFARCTION [None]
  - HEADACHE [None]
  - PARAESTHESIA [None]
